FAERS Safety Report 20358417 (Version 2)
Quarter: 2022Q1

REPORT INFORMATION
  Report Type: Spontaneous
  Country: US (occurrence: US)
  Receive Date: 20220120
  Receipt Date: 20220120
  Transmission Date: 20220423
  Serious: Yes (Other)
  Sender: FDA-Public Use
  Company Number: US-CELGENE-USA-20220104168

PATIENT
  Sex: Male
  Weight: 72.640 kg

DRUGS (1)
  1. REVLIMID [Suspect]
     Active Substance: LENALIDOMIDE
     Indication: Plasma cell myeloma
     Dosage: 20 MILLIGRAM
     Route: 048
     Dates: start: 20211112

REACTIONS (5)
  - Hypothalamo-pituitary disorder [Unknown]
  - Feeling abnormal [Unknown]
  - Disturbance in attention [Unknown]
  - Fatigue [Unknown]
  - Dizziness [Unknown]
